FAERS Safety Report 9308556 (Version 1)
Quarter: 2013Q2

REPORT INFORMATION
  Report Type: Spontaneous
  Country: CN (occurrence: CN)
  Receive Date: 20130524
  Receipt Date: 20130524
  Transmission Date: 20140414
  Serious: Yes (Other)
  Sender: FDA-Public Use
  Company Number: CN-JNJFOC-20130514609

PATIENT
  Age: 38 Year
  Sex: Male

DRUGS (6)
  1. RISPERIDONE [Suspect]
     Indication: SCHIZOPHRENIA
     Route: 048
     Dates: start: 20080312, end: 20121106
  2. RISPERIDONE [Suspect]
     Indication: SCHIZOPHRENIA
     Route: 048
     Dates: start: 20080226, end: 20080312
  3. RISPERIDONE [Suspect]
     Indication: POVERTY OF THOUGHT CONTENT
     Route: 048
     Dates: start: 20080312, end: 20121106
  4. RISPERIDONE [Suspect]
     Indication: POVERTY OF THOUGHT CONTENT
     Route: 048
     Dates: start: 20080226, end: 20080312
  5. RISPERIDONE [Suspect]
     Indication: APATHY
     Route: 048
     Dates: start: 20080312, end: 20121106
  6. RISPERIDONE [Suspect]
     Indication: APATHY
     Route: 048
     Dates: start: 20080226, end: 20080312

REACTIONS (1)
  - Defect conduction intraventricular [Recovering/Resolving]
